FAERS Safety Report 14366248 (Version 1)
Quarter: 2018Q1

REPORT INFORMATION
  Report Type: Spontaneous
  Country: CN (occurrence: CN)
  Receive Date: 20180109
  Receipt Date: 20180109
  Transmission Date: 20180509
  Serious: Yes (Other)
  Sender: FDA-Public Use
  Company Number: CN-MERCK KGAA-2039701

PATIENT
  Age: 38 Year
  Sex: Female

DRUGS (1)
  1. NOVOTHYROX [Suspect]
     Active Substance: LEVOTHYROXINE SODIUM
     Indication: POST PROCEDURAL HYPOTHYROIDISM
     Route: 048
     Dates: start: 2015

REACTIONS (8)
  - Live birth [None]
  - Breast feeding [None]
  - Heart rate increased [None]
  - Blood pressure increased [None]
  - Complication of pregnancy [None]
  - Discomfort [None]
  - Overdose [None]
  - Maternal exposure during pregnancy [None]

NARRATIVE: CASE EVENT DATE: 2017
